FAERS Safety Report 9437602 (Version 3)
Quarter: 2013Q3

REPORT INFORMATION
  Report Type: Spontaneous
  Country: US (occurrence: None)
  Receive Date: 20130731
  Receipt Date: 20130823
  Transmission Date: 20140515
  Serious: Yes (Hospitalization)
  Sender: FDA-Public Use
  Company Number: 2013-3103

PATIENT
  Age: 46 Year
  Sex: Female

DRUGS (5)
  1. SOMATULINE DEPOT [Suspect]
     Indication: ACROMEGALY
     Route: 058
     Dates: start: 20130314
  2. FESTAL (PANCREAS EXTRACT) [Concomitant]
  3. ACTIVATED CARBON (CARBON) [Concomitant]
  4. ERYTHROMYCIN (ERYTHROMYCIN) [Concomitant]
  5. MIRALAX (MACROGOL) [Concomitant]

REACTIONS (9)
  - Pituitary tumour removal [None]
  - Post procedural complication [None]
  - Hyponatraemia [None]
  - Insulin-like growth factor increased [None]
  - Blood glucose decreased [None]
  - International normalised ratio increased [None]
  - Blood calcium decreased [None]
  - Haematocrit decreased [None]
  - Haemoglobin decreased [None]
